FAERS Safety Report 15642732 (Version 2)
Quarter: 2019Q1

REPORT INFORMATION
  Report Type: Spontaneous
  Country: US (occurrence: US)
  Receive Date: 20181121
  Receipt Date: 20190117
  Transmission Date: 20190417
  Serious: No
  Sender: FDA-Public Use
  Company Number: US-GLENMARK PHARMACEUTICALS-2018GMK037559

PATIENT

DRUGS (2)
  1. RIZATRIPTAN BENZOATE. [Suspect]
     Active Substance: RIZATRIPTAN BENZOATE
     Indication: VERTIGO
     Dosage: 5 MG, PRN (TOOK TWO CRUSHED TABLETS BETWEEN 29-AUG-2018 TO 22-SEP-2018)
     Route: 048
     Dates: start: 201808, end: 201809
  2. RIZATRIPTAN BENZOATE. [Suspect]
     Active Substance: RIZATRIPTAN BENZOATE
     Dosage: 5 MG, PRN (TOOK 3RD TABLET)
     Route: 048
     Dates: start: 20180923

REACTIONS (6)
  - Wrong technique in product usage process [Unknown]
  - Poor quality product administered [Unknown]
  - Product physical issue [Unknown]
  - No adverse event [Unknown]
  - Intentional product use issue [Unknown]
  - Product use in unapproved indication [Unknown]

NARRATIVE: CASE EVENT DATE: 2018
